FAERS Safety Report 14971302 (Version 5)
Quarter: 2018Q3

REPORT INFORMATION
  Report Type: Spontaneous
  Country: US (occurrence: US)
  Receive Date: 20180604
  Receipt Date: 20180720
  Transmission Date: 20181010
  Serious: Yes (Hospitalization)
  Sender: FDA-Public Use
  Company Number: US-ACTELION-A-NJ2018-172469

PATIENT
  Age: 81 Year
  Sex: Male
  Weight: 95.24 kg

DRUGS (5)
  1. ADCIRCA [Concomitant]
     Active Substance: TADALAFIL
  2. OPSUMIT [Suspect]
     Active Substance: MACITENTAN
     Indication: PULMONARY HYPERTENSION
     Dosage: 10 MG, QD
     Route: 048
  3. ADEMPAS [Suspect]
     Active Substance: RIOCIGUAT
     Indication: PRODUCT USED FOR UNKNOWN INDICATION
     Dosage: 1 MG, UNK
     Route: 065
  4. REMODULIN [Concomitant]
     Active Substance: TREPROSTINIL
  5. WARFARIN [Concomitant]
     Active Substance: WARFARIN

REACTIONS (9)
  - Weight increased [Unknown]
  - Nausea [Unknown]
  - Diagnostic procedure [Unknown]
  - Oedema [Unknown]
  - Dyspnoea [Unknown]
  - Constipation [Unknown]
  - Vomiting [Unknown]
  - Muscle spasms [Unknown]
  - Hypotension [Unknown]
